FAERS Safety Report 7652519 (Version 4)
Quarter: 2013Q1

REPORT INFORMATION
  Report Type: Spontaneous
  Country: US (occurrence: US)
  Receive Date: 20101101
  Receipt Date: 20130128
  Transmission Date: 20140127
  Serious: No
  Sender: FDA-Public Use
  Company Number: US-ASTRAZENECA-2010SE49200

PATIENT
  Age: 53 Year
  Sex: Female

DRUGS (10)
  1. METOPROLOL SUCCINATE [Suspect]
     Route: 048
  2. PRILOSEC [Suspect]
     Route: 048
  3. SEROQUEL [Suspect]
     Indication: BIPOLAR I DISORDER
     Route: 048
  4. SEROQUEL [Suspect]
     Indication: DEPRESSION
     Route: 048
  5. SEROQUEL [Suspect]
     Indication: BIPOLAR I DISORDER
     Route: 048
  6. SEROQUEL [Suspect]
     Indication: DEPRESSION
     Route: 048
  7. NEXIUM [Suspect]
     Route: 048
  8. AMLODIPINE  BESYLATE [Suspect]
     Indication: HYPERTENSION
     Route: 065
  9. LITHIUM [Suspect]
     Route: 065
  10. ROZEREM [Suspect]
     Route: 065

REACTIONS (11)
  - Hypertension [Unknown]
  - Heart valve incompetence [Unknown]
  - Cardiac disorder [Unknown]
  - Gastritis [Unknown]
  - Anaemia [Unknown]
  - Tachycardia [Unknown]
  - Depression [Unknown]
  - Malaise [Unknown]
  - Drug dose omission [Unknown]
  - Intentional drug misuse [Unknown]
  - Drug ineffective [Unknown]
